FAERS Safety Report 14616466 (Version 1)
Quarter: 2018Q1

REPORT INFORMATION
  Report Type: Spontaneous
  Country: GB (occurrence: GB)
  Receive Date: 20180309
  Receipt Date: 20180309
  Transmission Date: 20180509
  Serious: Yes (Other)
  Sender: FDA-Public Use
  Company Number: GB-SUN PHARMACEUTICAL INDUSTRIES LTD-2018RR-165629

PATIENT
  Age: 24 Year
  Sex: Female
  Weight: 66.67 kg

DRUGS (2)
  1. VITAMIN D [Concomitant]
     Active Substance: CHOLECALCIFEROL
     Indication: PRODUCT USED FOR UNKNOWN INDICATION
     Route: 065
  2. CITALOPRAM [Suspect]
     Active Substance: CITALOPRAM HYDROBROMIDE
     Indication: DEPRESSION
     Route: 048

REACTIONS (5)
  - Dizziness [Recovered/Resolved]
  - Panic attack [Recovered/Resolved]
  - Dyspnoea [Unknown]
  - Anxiety [Recovered/Resolved]
  - Joint stiffness [Recovered/Resolved]
